FAERS Safety Report 12145729 (Version 1)
Quarter: 2016Q1

REPORT INFORMATION
  Report Type: Spontaneous
  Country: US (occurrence: None)
  Receive Date: 20160303
  Receipt Date: 20160303
  Transmission Date: 20160526
  Serious: No
  Sender: FDA-Public Use
  Company Number: None

PATIENT
  Age: 53 Year
  Sex: Female
  Weight: 62.5 kg

DRUGS (6)
  1. TAMOXIFEN [Concomitant]
     Active Substance: TAMOXIFEN
  2. CYCLOPHOSPHAMIDE. [Suspect]
     Active Substance: CYCLOPHOSPHAMIDE
     Dates: end: 20120810
  3. CARBOPLATIN. [Concomitant]
     Active Substance: CARBOPLATIN
  4. RALOXIFENE. [Concomitant]
     Active Substance: RALOXIFENE
  5. DOXORUBICIN HYDROCHLORIDE. [Suspect]
     Active Substance: DOXORUBICIN HYDROCHLORIDE
     Dates: end: 20120810
  6. TAXOL [Suspect]
     Active Substance: PACLITAXEL
     Dates: end: 20120906

REACTIONS (11)
  - Fluid retention [None]
  - Myalgia [None]
  - Pancytopenia [None]
  - Hot flush [None]
  - Acute myeloid leukaemia [None]
  - Skin exfoliation [None]
  - Arthralgia [None]
  - Onychomadesis [None]
  - Alopecia [None]
  - Neuropathy peripheral [None]
  - Muscle spasms [None]

NARRATIVE: CASE EVENT DATE: 20160208
